FAERS Safety Report 19216583 (Version 1)
Quarter: 2021Q2

REPORT INFORMATION
  Report Type: Spontaneous
  Country: US (occurrence: US)
  Receive Date: 20210504
  Receipt Date: 20210504
  Transmission Date: 20210717
  Serious: Yes (Hospitalization)
  Sender: FDA-Public Use
  Company Number: None

PATIENT
  Sex: Male

DRUGS (11)
  1. ARAVA [Concomitant]
     Active Substance: LEFLUNOMIDE
  2. BENZONATE [Concomitant]
     Active Substance: BENZONATATE
  3. PHENTERMINE. [Concomitant]
     Active Substance: PHENTERMINE
  4. TRULICITY [Concomitant]
     Active Substance: DULAGLUTIDE
  5. FLOMAX [Concomitant]
     Active Substance: TAMSULOSIN HYDROCHLORIDE
  6. LEFLUNOMIDE. [Concomitant]
     Active Substance: LEFLUNOMIDE
  7. METFORMIN [Concomitant]
     Active Substance: METFORMIN HYDROCHLORIDE
  8. MELOXICAM. [Concomitant]
     Active Substance: MELOXICAM
  9. XELJANZ XR [Suspect]
     Active Substance: TOFACITINIB CITRATE
     Indication: RHEUMATOID ARTHRITIS
     Route: 048
     Dates: start: 20191106
  10. CALCIFEROL [Concomitant]
  11. ROSIVASTATIN [Concomitant]

REACTIONS (6)
  - Cardiovascular disorder [None]
  - Condition aggravated [None]
  - Pain [None]
  - Rheumatoid arthritis [None]
  - Therapy interrupted [None]
  - Adverse drug reaction [None]
